FAERS Safety Report 6760039-8 (Version None)
Quarter: 2010Q2

REPORT INFORMATION
  Report Type: 
  Country: None (occurrence: None)
  Receive Date: 20100604
  Receipt Date: 20100521
  Transmission Date: 20101027
  Serious: Yes (Hospitalization)
  Sender: FDA-Public Use
  Company Number: 230508K09BRA

PATIENT
  Age: 48 Year
  Sex: Female

DRUGS (12)
  1. REBIF [Suspect]
     Indication: RELAPSING-REMITTING MULTIPLE SCLEROSIS
     Dosage: 44 MCG, 3 IN 1 WK, SUBCUTANEOUS
     Route: 058
     Dates: start: 20080615
  2. OMEPRAZOLE [Concomitant]
  3. CORTICORTEN (PREDNISONE) (PREDNISONE) [Concomitant]
  4. CAPTOPRIL [Concomitant]
  5. MONOCORDIL (ISOSORBIDE MONONITRATE) [Concomitant]
  6. AMITRIPTYLINE HYDROCHLORIDE [Concomitant]
  7. LORATADINE [Concomitant]
  8. MELOXICAM [Concomitant]
  9. FAMOTIDINE [Concomitant]
  10. DIUREMIDA (FUROSEMIDE) [Concomitant]
  11. ALDACTONE/DIACQUA (SPIRONOLACTONE) [Concomitant]
  12. METFORMIN HCL [Concomitant]

REACTIONS (4)
  - LOSS OF CONSCIOUSNESS [None]
  - MULTIPLE SCLEROSIS RELAPSE [None]
  - PARAESTHESIA ORAL [None]
  - THROMBOSIS [None]
